FAERS Safety Report 19945780 (Version 2)
Quarter: 2023Q2

REPORT INFORMATION
  Report Type: Spontaneous
  Country: US (occurrence: US)
  Receive Date: 20211012
  Receipt Date: 20230623
  Transmission Date: 20230721
  Serious: Yes (Hospitalization)
  Sender: FDA-Public Use
  Company Number: US-PFIZER INC-202101291998

PATIENT
  Age: 90 Year
  Sex: Female

DRUGS (3)
  1. IBRANCE [Suspect]
     Active Substance: PALBOCICLIB
     Indication: Breast cancer female
     Dosage: 75 MG TABLET, 1 TABLET ORAL DAILY, THEN 7 DAYS REST
     Route: 048
     Dates: start: 20011214
  2. IBRANCE [Suspect]
     Active Substance: PALBOCICLIB
     Indication: Skin mass
     Dosage: 75 MG, CYCLIC
     Dates: start: 20210519
  3. LETROZOLE [Concomitant]
     Active Substance: LETROZOLE
     Dosage: UNK

REACTIONS (1)
  - Fall [Unknown]

NARRATIVE: CASE EVENT DATE: 20210101
